FAERS Safety Report 6566569-6 (Version None)
Quarter: 2010Q1

REPORT INFORMATION
  Report Type: 
  Country: None (occurrence: None)
  Receive Date: 20100202
  Receipt Date: 20100125
  Transmission Date: 20100710
  Serious: Yes (Other)
  Sender: FDA-Public Use
  Company Number: JP-PFIZER INC-2010010359

PATIENT
  Age: 89 Year
  Sex: Male

DRUGS (1)
  1. DETRUSITOL [Suspect]
     Route: 048

REACTIONS (2)
  - HYPONATRAEMIA [None]
  - RESTLESSNESS [None]
